FAERS Safety Report 6361684-4 (Version None)
Quarter: 2009Q3

REPORT INFORMATION
  Report Type: 
  Country: None (occurrence: None)
  Receive Date: 20090918
  Receipt Date: 20090916
  Transmission Date: 20100115
  Serious: Yes (Other)
  Sender: FDA-Public Use
  Company Number: US-B.I. PHARMACEUTICALS,INC./RIDGEFIELD-2008-BP-00624BP

PATIENT
  Sex: Female

DRUGS (12)
  1. SPIRIVA [Suspect]
     Indication: BRONCHITIS CHRONIC
     Dosage: 36 MCG
     Route: 055
     Dates: start: 20060101
  2. SPIRIVA [Suspect]
     Indication: CHRONIC OBSTRUCTIVE PULMONARY DISEASE
  3. SPIRIVA [Suspect]
     Indication: ASTHMA
  4. LORAZEPAM [Concomitant]
     Indication: ANXIETY
  5. LORAZEPAM [Concomitant]
     Indication: DEPRESSION
  6. THEOPHYLLINE [Concomitant]
     Indication: CHRONIC OBSTRUCTIVE PULMONARY DISEASE
  7. VITAMIN B-12 [Concomitant]
     Route: 048
     Dates: start: 20090101
  8. CALCIUM CHEWS [Concomitant]
     Indication: HIP FRACTURE
     Dosage: 450 MG
     Route: 048
     Dates: start: 20090101
  9. OCUVITE LUTEIN [Concomitant]
     Indication: MACULAR DEGENERATION
  10. OXYBUTYNIN CHLORIDE [Concomitant]
     Indication: URINARY INCONTINENCE
  11. ALBUTEROL [Concomitant]
  12. SINGULAIR [Concomitant]

REACTIONS (12)
  - ABDOMINAL PAIN [None]
  - CATARACT [None]
  - CONTUSION [None]
  - DRY MOUTH [None]
  - FALL [None]
  - GASTROOESOPHAGEAL REFLUX DISEASE [None]
  - HIP FRACTURE [None]
  - JOINT INJURY [None]
  - MACULAR DEGENERATION [None]
  - MUSCLE SPASMS [None]
  - URINARY INCONTINENCE [None]
  - VITAMIN D DECREASED [None]
